FAERS Safety Report 7682347-9 (Version None)
Quarter: 2011Q3

REPORT INFORMATION
  Report Type: 
  Country: None (occurrence: None)
  Receive Date: 20110815
  Receipt Date: 20110810
  Transmission Date: 20111222
  Serious: Yes (Hospitalization)
  Sender: FDA-Public Use
  Company Number: US-BRISTOL-MYERS SQUIBB COMPANY-15961535

PATIENT
  Age: 70 Year
  Sex: Female
  Weight: 81 kg

DRUGS (5)
  1. RHUMAB-VEGF [Suspect]
     Indication: BREAST CANCER
     Dosage: INTER ON 17JUN11,CYCLE:27 DAYS,10MG/KG OVER 30-90 MIN ON DAYS 1 AND 15
     Route: 042
     Dates: start: 20110413
  2. KEFLEX [Concomitant]
     Route: 048
  3. IXEMPRA KIT [Suspect]
     Indication: BREAST CANCER
     Dosage: INTER ON 17JUN11;CYCL:28 DAYS,16MG/M2 OVER 1 HR ON DAYS 1,8 AND 15,DOSE REDUCED
     Route: 042
     Dates: start: 20110413
  4. HYDROCHLOROTHIAZIDE [Concomitant]
     Route: 048
  5. METOPROLOL TARTRATE [Concomitant]
     Route: 048

REACTIONS (3)
  - URINARY TRACT INFECTION [None]
  - DEHYDRATION [None]
  - LOSS OF CONSCIOUSNESS [None]
